FAERS Safety Report 10103399 (Version 2)
Quarter: 2014Q2

REPORT INFORMATION
  Report Type: Spontaneous
  Country: IT (occurrence: IT)
  Receive Date: 20140424
  Receipt Date: 20140606
  Transmission Date: 20141212
  Serious: Yes (Hospitalization)
  Sender: FDA-Public Use
  Company Number: IT-BAYER-2014-055935

PATIENT
  Age: 93 Year
  Sex: Female

DRUGS (10)
  1. CARDIOASPIRIN [Suspect]
     Indication: PROPHYLAXIS
     Dosage: DAILY DOSE 100 MG
     Route: 048
     Dates: start: 20130101, end: 20140209
  2. TICLOPIDINE [Suspect]
     Indication: PROPHYLAXIS
     Dosage: DAILY DOSE 1 DF
     Route: 048
     Dates: start: 20130101, end: 20140209
  3. ENALAPRIL [Concomitant]
     Dosage: DAILY DOSE 2.5 MG
     Route: 048
  4. FUROSEMIDE [Concomitant]
     Dosage: DAILY DOSE 25 MG
     Route: 048
  5. PANTOPRAZOLE [Concomitant]
     Dosage: DAILY DOSE 20 MG
     Route: 048
  6. LORAZEPAM [Concomitant]
     Dosage: DAILY DOSE 1.25 MG
     Route: 048
  7. TAPAZOLE [Concomitant]
     Dosage: DAILY DOSE 5 MG
     Route: 048
  8. NITRODERM TTS [Concomitant]
     Dosage: DAILY DOSE 1 DF
     Route: 003
  9. INDERAL [Concomitant]
     Dosage: DAILY DOSE 1 DF
     Route: 048
  10. ALDACTONE [SPIRONOLACTONE] [Concomitant]
     Dosage: DAILY DOSE 12.5 MG
     Route: 048

REACTIONS (1)
  - Anaemia [Recovering/Resolving]
